FAERS Safety Report 25430195 (Version 1)
Quarter: 2025Q2

REPORT INFORMATION
  Report Type: Spontaneous
  Country: FR (occurrence: FR)
  Receive Date: 20250612
  Receipt Date: 20250612
  Transmission Date: 20250717
  Serious: Yes (Disabling)
  Sender: TEVA
  Company Number: FR-BIOGARAN-B25000975

PATIENT
  Age: 87 Year
  Sex: Female

DRUGS (1)
  1. LEVOFLOXACIN [Suspect]
     Active Substance: LEVOFLOXACIN
     Indication: Cystitis
     Dosage: 1 DOSAGE FORM, QD, LEVOFLOXACINE BIOGARAN 500 MG SCORED FILM-COATED TABLET
     Route: 048
     Dates: start: 2025, end: 2025

REACTIONS (5)
  - Pain in extremity [Recovering/Resolving]
  - Insomnia [Recovering/Resolving]
  - Increased dose administered [Recovering/Resolving]
  - Intentional product misuse [Recovering/Resolving]
  - Intentional product use issue [Recovering/Resolving]

NARRATIVE: CASE EVENT DATE: 20250101
